FAERS Safety Report 21875285 (Version 1)
Quarter: 2023Q1

REPORT INFORMATION
  Report Type: Spontaneous
  Country: US (occurrence: US)
  Receive Date: 20230117
  Receipt Date: 20230117
  Transmission Date: 20230417
  Serious: Yes (Other)
  Sender: FDA-Public Use
  Company Number: US-SUN PHARMACEUTICAL INDUSTRIES LTD-2023R1-373589

PATIENT
  Age: 45 Year
  Sex: Male

DRUGS (1)
  1. OLANZAPINE [Suspect]
     Active Substance: OLANZAPINE
     Indication: Agitation
     Dosage: UNK (LOW-DOSE)
     Route: 065

REACTIONS (4)
  - Drug ineffective [Unknown]
  - Hypersexuality [Recovering/Resolving]
  - Tachyphrenia [Recovering/Resolving]
  - Insomnia [Recovering/Resolving]
